FAERS Safety Report 21131287 (Version 1)
Quarter: 2022Q3

REPORT INFORMATION
  Report Type: Spontaneous
  Country: US (occurrence: None)
  Receive Date: 20220726
  Receipt Date: 20220726
  Transmission Date: 20221027
  Serious: Yes (Other)
  Sender: FDA-Public Use
  Company Number: 2022A259866

PATIENT
  Sex: Female

DRUGS (4)
  1. FARXIGA [Suspect]
     Active Substance: DAPAGLIFLOZIN PROPANEDIOL
     Indication: Type 2 diabetes mellitus
     Route: 048
     Dates: start: 20220427, end: 20220718
  2. ANTIDIABETICS [Concomitant]
  3. PREDNISONE [Concomitant]
     Active Substance: PREDNISONE
  4. GOUT [Concomitant]

REACTIONS (13)
  - Blood pressure decreased [Not Recovered/Not Resolved]
  - Neuropathy peripheral [Not Recovered/Not Resolved]
  - Pain [Not Recovered/Not Resolved]
  - Swelling [Not Recovered/Not Resolved]
  - Gait inability [Not Recovered/Not Resolved]
  - Erythema [Not Recovered/Not Resolved]
  - Micturition urgency [Not Recovered/Not Resolved]
  - Pollakiuria [Not Recovered/Not Resolved]
  - Hyperhidrosis [Not Recovered/Not Resolved]
  - Visual impairment [Not Recovered/Not Resolved]
  - Skin lesion [Not Recovered/Not Resolved]
  - Blood uric acid increased [Not Recovered/Not Resolved]
  - Raynaud^s phenomenon [Not Recovered/Not Resolved]
